FAERS Safety Report 5090780-7 (Version None)
Quarter: 2006Q3

REPORT INFORMATION
  Report Type: 
  Country: None (occurrence: None)
  Receive Date: 20060823
  Receipt Date: 20060810
  Transmission Date: 20061208
  Serious: Yes (Other)
  Sender: FDA-Public Use
  Company Number: 06-0092PO-FU2

PATIENT
  Age: 25 Year
  Sex: Female

DRUGS (2)
  1. MEFENAMIC ACID [Suspect]
     Indication: PAIN
     Dosage: 250 MG, TID, PO
     Route: 048
     Dates: start: 20060712, end: 20060712
  2. LEVOFLOXACIN [Concomitant]

REACTIONS (2)
  - FACE OEDEMA [None]
  - URTICARIA GENERALISED [None]
